FAERS Safety Report 24416087 (Version 1)
Quarter: 2024Q4

REPORT INFORMATION
  Report Type: Spontaneous
  Country: TN (occurrence: TN)
  Receive Date: 20241009
  Receipt Date: 20241009
  Transmission Date: 20250114
  Serious: Yes (Other)
  Sender: MYLAN
  Company Number: TN-MYLANLABS-2024M1091754

PATIENT
  Age: 32 Year
  Sex: Male

DRUGS (1)
  1. CLOMIPRAMINE [Suspect]
     Active Substance: CLOMIPRAMINE
     Indication: Obsessive-compulsive disorder
     Dosage: 150 MILLIGRAM, QD
     Route: 065
     Dates: start: 2022

REACTIONS (1)
  - Drug ineffective [Unknown]
